FAERS Safety Report 5815224-6 (Version None)
Quarter: 2008Q3

REPORT INFORMATION
  Report Type: 
  Country: None (occurrence: None)
  Receive Date: 20080718
  Receipt Date: 20080703
  Transmission Date: 20090109
  Serious: Yes (Death, Hospitalization)
  Sender: FDA-Public Use
  Company Number: FR-GENENTECH-264270

PATIENT
  Sex: Male

DRUGS (3)
  1. BEVACIZUMAB [Suspect]
     Indication: COLORECTAL CANCER METASTATIC
     Dosage: 450 MG, Q3W
     Route: 042
     Dates: start: 20070813
  2. ERLOTINIB [Suspect]
     Indication: COLORECTAL CANCER METASTATIC
     Dosage: 3150 MG, Q3W
     Dates: start: 20071112
  3. CAPECITABINE [Suspect]
     Indication: COLORECTAL CANCER METASTATIC
     Dosage: 437 MG, Q2W
     Dates: start: 20070813

REACTIONS (1)
  - GENERAL PHYSICAL HEALTH DETERIORATION [None]
